FAERS Safety Report 20362605 (Version 3)
Quarter: 2022Q3

REPORT INFORMATION
  Report Type: Other
  Country: CA (occurrence: None)
  Receive Date: 20220121
  Receipt Date: 20220908
  Transmission Date: 20221027
  Serious: Yes (Other)
  Sender: FDA-Public Use
  Company Number: CA-ROCHE-2424529

PATIENT
  Age: 53 Year
  Sex: Male

DRUGS (10)
  1. OCREVUS [Suspect]
     Active Substance: OCRELIZUMAB
     Indication: Relapsing-remitting multiple sclerosis
     Dosage: 300 MG AT DAY 0 AND 14, THEN 600 MG EVERY 6 MONTH
     Route: 042
     Dates: start: 20190918
  2. PREGABALIN [Concomitant]
     Active Substance: PREGABALIN
  3. BACLOFEN [Concomitant]
     Active Substance: BACLOFEN
  4. NABILONE [Concomitant]
     Active Substance: NABILONE
  5. DULOXETINE [Concomitant]
     Active Substance: DULOXETINE
  6. ROSUVASTATIN [Concomitant]
     Active Substance: ROSUVASTATIN
  7. RAMIPRIL [Concomitant]
     Active Substance: RAMIPRIL
  8. BIAXIN [Concomitant]
     Active Substance: CLARITHROMYCIN
  9. VENTOLIN [Concomitant]
     Active Substance: ALBUTEROL SULFATE
  10. FLOVENT [Concomitant]
     Active Substance: FLUTICASONE PROPIONATE

REACTIONS (16)
  - Arthropathy [Unknown]
  - Asthenia [Not Recovered/Not Resolved]
  - Fatigue [Not Recovered/Not Resolved]
  - Pain in extremity [Not Recovered/Not Resolved]
  - Muscle spasms [Not Recovered/Not Resolved]
  - Hypoaesthesia [Not Recovered/Not Resolved]
  - Burning sensation [Not Recovered/Not Resolved]
  - Insomnia [Not Recovered/Not Resolved]
  - Muscular weakness [Not Recovered/Not Resolved]
  - Drug ineffective [Unknown]
  - Sinusitis [Recovered/Resolved]
  - SARS-CoV-2 test positive [Recovered/Resolved]
  - Bronchitis [Recovered/Resolved]
  - Laryngitis [Recovered/Resolved]
  - Asthenia [Not Recovered/Not Resolved]
  - Vitamin B12 decreased [Recovered/Resolved]

NARRATIVE: CASE EVENT DATE: 20190918
